FAERS Safety Report 23884347 (Version 1)
Quarter: 2024Q2

REPORT INFORMATION
  Report Type: Spontaneous
  Country: US (occurrence: US)
  Receive Date: 20240522
  Receipt Date: 20240522
  Transmission Date: 20240716
  Serious: No
  Sender: FDA-Public Use
  Company Number: US-CATALYST PHARMACEUTICALS-US-CATA-24-00302

PATIENT
  Age: 14 Year
  Sex: Male
  Weight: 45.351 kg

DRUGS (7)
  1. AGAMREE [Suspect]
     Active Substance: VAMOROLONE
     Indication: Duchenne muscular dystrophy
     Dosage: 4.4 ML DAILY
     Route: 048
     Dates: start: 20240326
  2. CLONIDINE [Concomitant]
     Active Substance: CLONIDINE
     Indication: Autism spectrum disorder
     Dosage: 0.3 MG DAILY
     Route: 065
  3. METOPROLOL [Concomitant]
     Active Substance: METOPROLOL
     Indication: Cardiac disorder
     Dosage: 12.5 MG DAILY
     Route: 065
  4. LISINOPRIL [Concomitant]
     Active Substance: LISINOPRIL
     Indication: Cardiac disorder
     Dosage: 2.5 MG DAILY
     Route: 065
  5. MIRALAX [Concomitant]
     Active Substance: POLYETHYLENE GLYCOL 3350
     Indication: Constipation
     Dosage: 17 G PER SCOOP AS NEEDED
     Route: 065
  6. CHILDREN^S MULTIVITAMINE [Concomitant]
     Indication: Hypovitaminosis
     Dosage: UNK, QD
     Route: 065
  7. RISPERIDONE [Concomitant]
     Active Substance: RISPERIDONE
     Indication: Autism spectrum disorder
     Dosage: 0.5 MG DAILY
     Route: 065

REACTIONS (1)
  - Nasopharyngitis [Not Recovered/Not Resolved]

NARRATIVE: CASE EVENT DATE: 20240401
